FAERS Safety Report 7441533-3 (Version None)
Quarter: 2011Q2

REPORT INFORMATION
  Report Type: 
  Country: None (occurrence: None)
  Receive Date: 20110428
  Receipt Date: 20110414
  Transmission Date: 20111010
  Serious: No
  Sender: FDA-Public Use
  Company Number: US-JNJFOC-20110407060

PATIENT
  Sex: Female
  Weight: 77.11 kg

DRUGS (10)
  1. FENTANYL-100 [Suspect]
     Indication: BACK PAIN
     Route: 062
  2. VALIUM [Concomitant]
     Indication: MUSCLE SPASMS
     Dosage: 10 MG X 2 AS NEEDED
     Route: 048
  3. ZANAFLEX [Concomitant]
     Route: 048
  4. LORTAB [Concomitant]
     Indication: PAIN
     Dosage: 7.5 MG X 2 AS NEEDED
     Route: 048
  5. DURAGESIC [Suspect]
     Indication: BACK PAIN
     Route: 062
  6. DURAGESIC [Suspect]
     Route: 062
  7. DILAUDID [Concomitant]
     Indication: PAIN
     Dosage: 2 MG X 2 AS NEEDED
     Route: 048
  8. NEURONTIN [Concomitant]
     Indication: MUSCLE SPASMS
     Route: 048
  9. DURAGESIC [Suspect]
     Route: 062
  10. TORADOL [Concomitant]
     Indication: MUSCLE SPASMS
     Route: 030

REACTIONS (6)
  - INCORRECT DRUG ADMINISTRATION DURATION [None]
  - WITHDRAWAL SYNDROME [None]
  - INADEQUATE ANALGESIA [None]
  - THERAPEUTIC RESPONSE UNEXPECTED WITH DRUG SUBSTITUTION [None]
  - WRONG TECHNIQUE IN DRUG USAGE PROCESS [None]
  - DRUG DOSE OMISSION [None]
